FAERS Safety Report 21237427 (Version 2)
Quarter: 2022Q3

REPORT INFORMATION
  Report Type: Spontaneous
  Country: US (occurrence: US)
  Receive Date: 20220822
  Receipt Date: 20220911
  Transmission Date: 20221027
  Serious: Yes (Other)
  Sender: FDA-Public Use
  Company Number: US-SA-SAC20220816000922

PATIENT
  Age: 71 Year
  Sex: Female
  Weight: 71 kg

DRUGS (3)
  1. LOVENOX [Suspect]
     Active Substance: ENOXAPARIN SODIUM
     Indication: Pulmonary embolism
     Dosage: 75 MG SUBCUT BID FROM 8/5 AM?8/8 AM
     Route: 058
     Dates: start: 20220805, end: 20220808
  2. LOVENOX [Suspect]
     Active Substance: ENOXAPARIN SODIUM
     Dosage: LOVENOX 70MG BID FROM 8/8 PM ?8/9 AM
     Route: 065
     Dates: start: 20220808, end: 20220809
  3. PROTAMINE [Concomitant]
     Active Substance: PROTAMINE
     Dosage: UNK

REACTIONS (2)
  - Retroperitoneal haemorrhage [Not Recovered/Not Resolved]
  - Shock haemorrhagic [Not Recovered/Not Resolved]

NARRATIVE: CASE EVENT DATE: 20220809
